FAERS Safety Report 10551247 (Version 1)
Quarter: 2014Q4

REPORT INFORMATION
  Report Type: Spontaneous
  Country: DE (occurrence: None)
  Receive Date: 20141027
  Receipt Date: 20141027
  Transmission Date: 20150529
  Serious: Yes (Death)
  Sender: FDA-Public Use
  Company Number: NSR_01642_2014

PATIENT
  Age: 7 Month
  Sex: Male

DRUGS (5)
  1. FUROSEMIDE. [Concomitant]
     Active Substance: FUROSEMIDE
  2. SPIRONOLACTONE. [Concomitant]
     Active Substance: SPIRONOLACTONE
  3. DIGOXIN. [Concomitant]
     Active Substance: DIGOXIN
  4. PROPRANOLOL [Suspect]
     Active Substance: PROPRANOLOL\PROPRANOLOL HYDROCHLORIDE
     Indication: CARDIAC FAILURE
  5. CAPTOPRIL. [Concomitant]
     Active Substance: CAPTOPRIL

REACTIONS (9)
  - Histiocytosis haematophagic [None]
  - Pulmonary hypertensive crisis [None]
  - Hepatic failure [None]
  - Gastrointestinal disorder [None]
  - Systemic inflammatory response syndrome [None]
  - Endotoxaemia [None]
  - Pulmonary oedema [None]
  - Respiratory failure [None]
  - Bronchospasm [None]
